FAERS Safety Report 8934298 (Version 1)
Quarter: 2012Q4

REPORT INFORMATION
  Report Type: 
  Country: US (occurrence: US)
  Receive Date: 20121129
  Receipt Date: 20121129
  Transmission Date: 20130627
  Serious: No
  Sender: FDA-Public Use
  Company Number: US-PFIZER INC-2012296738

PATIENT
  Age: 42 Year
  Sex: Male

DRUGS (1)
  1. FLUCONAZOLE [Suspect]
     Indication: ONYCHOMYCOSIS
     Dosage: UNK

REACTIONS (6)
  - Vertigo [Unknown]
  - Vomiting [Unknown]
  - Headache [Unknown]
  - Paraesthesia [Unknown]
  - Ageusia [Unknown]
  - Headache [Unknown]
